FAERS Safety Report 7614150-X (Version None)
Quarter: 2011Q3

REPORT INFORMATION
  Report Type: 
  Country: None (occurrence: None)
  Receive Date: 20110708
  Receipt Date: 20110624
  Transmission Date: 20111222
  Serious: Yes (Hospitalization)
  Sender: FDA-Public Use
  Company Number: AUR-APL-2011-03706

PATIENT
  Age: 54 Year
  Sex: Male

DRUGS (1)
  1. PAROXETINE HCL [Suspect]
     Indication: DEPRESSION

REACTIONS (4)
  - SUICIDAL IDEATION [None]
  - INSOMNIA [None]
  - MANIA [None]
  - ABNORMAL BEHAVIOUR [None]
